FAERS Safety Report 9716217 (Version 2)
Quarter: 2013Q4

REPORT INFORMATION
  Report Type: Report from Study
  Country: KR (occurrence: KR)
  Receive Date: 20131127
  Receipt Date: 20131202
  Transmission Date: 20140711
  Serious: Yes (Death, Hospitalization)
  Sender: FDA-Public Use
  Company Number: KR-SA-2013SA119511

PATIENT
  Age: 39 Year
  Sex: Male

DRUGS (2)
  1. LANTUS [Suspect]
     Indication: DIABETES MELLITUS
     Dosage: DOSE:16 UNIT(S)
     Route: 058
  2. NOVORAPID [Suspect]
     Indication: DIABETES MELLITUS
     Dosage: DOSE: 10-12-18 UNIT
     Route: 058

REACTIONS (4)
  - Dyspnoea [Fatal]
  - Diarrhoea [Unknown]
  - Pancreatitis chronic [Unknown]
  - Hyperglycaemia [Unknown]
